FAERS Safety Report 11091492 (Version 2)
Quarter: 2015Q2

REPORT INFORMATION
  Report Type: Spontaneous
  Country: JP (occurrence: JP)
  Receive Date: 20150505
  Receipt Date: 20150514
  Transmission Date: 20150821
  Serious: Yes (Other)
  Sender: FDA-Public Use
  Company Number: PHHY2015JP050842

PATIENT
  Age: 51 Year
  Sex: Female

DRUGS (1)
  1. PREDNISOLONE. [Suspect]
     Active Substance: PREDNISOLONE
     Indication: ENCEPHALITIS
     Dosage: 60 MG, QD
     Route: 065

REACTIONS (2)
  - Thunderclap headache [Recovering/Resolving]
  - Cerebral venous thrombosis [Unknown]
